FAERS Safety Report 9815752 (Version 1)
Quarter: 2014Q1

REPORT INFORMATION
  Report Type: Spontaneous
  Country: US (occurrence: None)
  Receive Date: 20140110
  Receipt Date: 20140110
  Transmission Date: 20141002
  Serious: Yes (Hospitalization)
  Sender: FDA-Public Use
  Company Number: A1055724A

PATIENT
  Age: 47 Year
  Sex: Female

DRUGS (5)
  1. ONDANSETRON [Suspect]
     Indication: VOMITING
  2. CLOZAPINE [Suspect]
     Indication: PRODUCT USED FOR UNKNOWN INDICATION
  3. CITALOPRAM (FORMULATION UNKNOWN) (CITALOPRAM) [Suspect]
     Indication: PRODUCT USED FOR UNKNOWN INDICATION
  4. METOCLOPRAMIDE [Suspect]
     Indication: VOMITING
  5. PROMETHAZINE [Concomitant]

REACTIONS (6)
  - Serotonin syndrome [None]
  - Salivary hypersecretion [None]
  - Muscle spasticity [None]
  - Clonus [None]
  - Agitation [None]
  - Unresponsive to stimuli [None]
